FAERS Safety Report 20745627 (Version 2)
Quarter: 2022Q2

REPORT INFORMATION
  Report Type: Spontaneous
  Country: JP (occurrence: JP)
  Receive Date: 20220425
  Receipt Date: 20220530
  Transmission Date: 20220721
  Serious: Yes (Other)
  Sender: FDA-Public Use
  Company Number: JP-MSD-M2022-12900

PATIENT
  Age: 58 Year
  Sex: Female
  Weight: 54 kg

DRUGS (6)
  1. MOLNUPIRAVIR [Suspect]
     Active Substance: MOLNUPIRAVIR
     Indication: COVID-19 treatment
     Dosage: 800 MILLIGRAM, BID
     Route: 048
     Dates: start: 20220319, end: 20220325
  2. CARBOCYSTEINE [Suspect]
     Active Substance: CARBOCYSTEINE
     Indication: COVID-19 treatment
     Dosage: 500 MILLIGRAM, TID
     Route: 048
     Dates: start: 20220319, end: 20220324
  3. KIKYOTO [Concomitant]
     Indication: COVID-19 treatment
     Dosage: 2.5 GRAM, TID
     Route: 048
     Dates: start: 20220319, end: 20220322
  4. ASVERIN (TIPEPIDINE HIBENZATE) [Concomitant]
     Active Substance: TIPEPIDINE HIBENZATE
     Indication: COVID-19 treatment
     Dosage: 20 MILLIGRAM, TID
     Route: 048
     Dates: start: 20220319, end: 20220324
  5. CALONAL [Concomitant]
     Active Substance: ACETAMINOPHEN
     Indication: COVID-19 treatment
     Dosage: 500 MILLIGRAM, PRN
     Route: 048
     Dates: start: 20220319
  6. COR TYZINE [Concomitant]
     Indication: COVID-19 treatment
     Dosage: UNK UNK, BID
     Route: 045
     Dates: start: 20220319

REACTIONS (1)
  - Toxic skin eruption [Unknown]

NARRATIVE: CASE EVENT DATE: 20220323
